FAERS Safety Report 8361002-6 (Version None)
Quarter: 2012Q2

REPORT INFORMATION
  Report Type: 
  Country: None (occurrence: None)
  Receive Date: 20120515
  Receipt Date: 20120502
  Transmission Date: 20120825
  Serious: Yes (Life-Threatening)
  Sender: FDA-Public Use
  Company Number: JP-GE HEALTHCARE MEDICAL DIAGNOSTICS-OMPQ-NO-1204S-0470

PATIENT
  Sex: Female

DRUGS (7)
  1. OMNIPAQUE 140 [Suspect]
     Indication: RECTAL CANCER
     Route: 042
     Dates: start: 20120425, end: 20120425
  2. CARVEDILOL [Concomitant]
  3. ASPIRIN [Concomitant]
  4. ISOSORBIDE DINITRATE [Concomitant]
  5. FUROSEMIDE [Concomitant]
  6. CRESTOR [Concomitant]
  7. ALLOPURINOL [Concomitant]

REACTIONS (6)
  - UNRESPONSIVE TO STIMULI [None]
  - DYSPNOEA [None]
  - VOMITING [None]
  - HYPOXIA [None]
  - FEELING HOT [None]
  - CARDIO-RESPIRATORY ARREST [None]
